FAERS Safety Report 18810651 (Version 1)
Quarter: 2021Q1

REPORT INFORMATION
  Report Type: Spontaneous
  Country: US (occurrence: US)
  Receive Date: 20210130
  Receipt Date: 20210130
  Transmission Date: 20210419
  Serious: No
  Sender: FDA-Public Use
  Company Number: US-009507513-2101USA013047

PATIENT
  Age: 38 Year
  Sex: Female

DRUGS (1)
  1. NEXPLANON [Suspect]
     Active Substance: ETONOGESTREL
     Indication: CONTRACEPTION
     Dosage: IMPLANT, RIGHT ARM, 3 YEARS
     Route: 059
     Dates: start: 20200917

REACTIONS (2)
  - Breast enlargement [Not Recovered/Not Resolved]
  - Back pain [Not Recovered/Not Resolved]
